FAERS Safety Report 8875831 (Version 2)
Quarter: 2012Q4

REPORT INFORMATION
  Report Type: 
  Country: JP (occurrence: JP)
  Receive Date: 20121030
  Receipt Date: 20121114
  Transmission Date: 20130627
  Serious: Yes (Hospitalization)
  Sender: FDA-Public Use
  Company Number: JP-GLAXOSMITHKLINE-B0837295A

PATIENT
  Age: 83 Year
  Sex: Female
  Weight: 42 kg

DRUGS (4)
  1. VALTREX [Suspect]
     Indication: HERPES ZOSTER
     Dosage: 1000MG Three times per day
     Route: 048
     Dates: start: 20110908, end: 20110909
  2. MICARDIS [Concomitant]
     Indication: HYPERTENSION
     Dosage: 40MG Per day
     Route: 048
     Dates: start: 20090918
  3. AMLODIN [Concomitant]
     Indication: HYPERTENSION
     Dosage: 2.5MG Per day
     Route: 048
     Dates: start: 20101105
  4. PARIET [Concomitant]
     Indication: GASTROOESOPHAGEAL REFLUX DISEASE
     Dosage: 10MG Per day
     Route: 048
     Dates: start: 20061204

REACTIONS (5)
  - Renal failure [Recovering/Resolving]
  - Encephalopathy [Unknown]
  - Stress cardiomyopathy [Recovered/Resolved]
  - Dyslalia [Unknown]
  - Gait disturbance [Unknown]
